FAERS Safety Report 10545228 (Version 3)
Quarter: 2015Q1

REPORT INFORMATION
  Report Type: Spontaneous
  Country: ES (occurrence: ES)
  Receive Date: 20141027
  Receipt Date: 20150225
  Transmission Date: 20150720
  Serious: Yes (Death, Hospitalization, Other)
  Sender: FDA-Public Use
  Company Number: ES-009507513-1405ESP013799

PATIENT

DRUGS (5)
  1. RIBAVIRIN. [Suspect]
     Active Substance: RIBAVIRIN
     Indication: HEPATITIS C
     Dosage: DOSE ADJUSTED BY WEIGHT
     Route: 048
     Dates: start: 2012
  2. TELAPREVIR [Suspect]
     Active Substance: TELAPREVIR
     Indication: HEPATITIS C
     Dosage: 750 MG T.I.D OR 1125 MG B.I.D
     Route: 065
     Dates: start: 2012
  3. BOCEPREVIR [Suspect]
     Active Substance: BOCEPREVIR
     Indication: HEPATITIS C
     Dosage: 800 MG, TID
     Route: 048
     Dates: start: 2012
  4. PEGINTERFERON ALFA-2B [Suspect]
     Active Substance: PEGINTERFERON ALFA-2B
     Dosage: 1.5 MICROGRAM PER KILOGRAM, QW
     Dates: start: 2012
  5. PEGINTERFERON ALFA-2A [Suspect]
     Active Substance: PEGINTERFERON ALFA-2A
     Indication: HEPATITIS C
     Dosage: 180 MICROGRAM, QW
     Route: 065
     Dates: start: 2012

REACTIONS (6)
  - Respiratory tract infection [Unknown]
  - Infection [Fatal]
  - Bacteraemia [Unknown]
  - Subcutaneous abscess [Unknown]
  - Genitourinary tract infection [Unknown]
  - Peritonitis bacterial [Unknown]
